FAERS Safety Report 5654883-8 (Version None)
Quarter: 2008Q1

REPORT INFORMATION
  Report Type: 
  Country: None (occurrence: None)
  Receive Date: 20080307
  Receipt Date: 20070822
  Transmission Date: 20080703
  Serious: No
  Sender: FDA-Public Use
  Company Number: A0674717A

PATIENT
  Sex: Female

DRUGS (8)
  1. REQUIP [Suspect]
     Indication: RESTLESS LEGS SYNDROME
     Dosage: 1MG PER DAY
     Route: 048
     Dates: start: 20070701
  2. LESCOL [Concomitant]
  3. TOPROL [Concomitant]
  4. GLIPIZIDE [Concomitant]
  5. ZETIA [Concomitant]
  6. DIOVAN HCT [Concomitant]
  7. ASPIRIN [Concomitant]
  8. ACTONEL [Concomitant]

REACTIONS (1)
  - FATIGUE [None]
